FAERS Safety Report 4388668-X (Version None)
Quarter: 2004Q2

REPORT INFORMATION
  Report Type: 
  Country: None (occurrence: None)
  Receive Date: 20040624
  Receipt Date: 20040611
  Transmission Date: 20050107
  Serious: Yes (Hospitalization)
  Sender: FDA-Public Use
  Company Number: FABR-10606

PATIENT
  Age: 43 Year
  Sex: Male
  Weight: 68.4 kg

DRUGS (9)
  1. FABRAZYME [Suspect]
     Indication: FABRY'S DISEASE
     Dosage: 60 MG Q2WKS IV
     Route: 042
     Dates: start: 20031119
  2. ACETAMINOPHEN [Concomitant]
  3. DIPHENHYDRAMINE [Concomitant]
  4. WARFARIN SODIUM [Concomitant]
  5. EFFEXOR [Concomitant]
  6. ASPIRIN [Concomitant]
  7. VITAMIN CAP [Concomitant]
  8. VITAMIN E [Concomitant]
  9. FOLATE [Concomitant]

REACTIONS (3)
  - CIRCULATORY COLLAPSE [None]
  - ORTHOSTATIC HYPOTENSION [None]
  - WHITE BLOOD CELL COUNT INCREASED [None]
